FAERS Safety Report 6349339-3 (Version None)
Quarter: 2009Q3

REPORT INFORMATION
  Report Type: 
  Country: None (occurrence: None)
  Receive Date: 20090911
  Receipt Date: 20090901
  Transmission Date: 20100115
  Serious: Yes (Hospitalization)
  Sender: FDA-Public Use
  Company Number: US-ELI_LILLY_AND_COMPANY-US200909000332

PATIENT
  Sex: Female
  Weight: 75.283 kg

DRUGS (9)
  1. BYETTA [Suspect]
     Indication: DIABETES MELLITUS
     Dosage: 5 UG, 2/D
     Route: 058
     Dates: start: 20070801, end: 20070101
  2. BYETTA [Suspect]
     Dosage: 10 UG, 2/D
     Route: 058
     Dates: start: 20070101
  3. ACTOS [Concomitant]
     Indication: DIABETES MELLITUS
     Dosage: 15 MG, DAILY (1/D)
  4. LORTAB [Concomitant]
     Indication: BONE PAIN
     Dosage: 7.5 MG, UNKNOWN
  5. SOMA [Concomitant]
     Indication: MUSCLE RELAXANT THERAPY
     Dosage: 350 MG, DAILY (1/D)
  6. XANAX [Concomitant]
     Indication: STRESS
     Dosage: 4 MG, AS NEEDED
  7. PROTONIX [Concomitant]
     Indication: GASTRIC DISORDER
     Dosage: 40 MG, UNKNOWN
  8. POTASSIUM CHLORIDE [Concomitant]
     Indication: SUPPLEMENTATION THERAPY
     Dosage: UNK, UNKNOWN
  9. LASIX [Concomitant]
     Indication: FLUID RETENTION
     Dosage: 40 MG, DAILY (1/D)

REACTIONS (9)
  - BLOOD GLUCOSE INCREASED [None]
  - CHEST PAIN [None]
  - CONTRAST MEDIA ALLERGY [None]
  - DYSPNOEA [None]
  - INAPPROPRIATE SCHEDULE OF DRUG ADMINISTRATION [None]
  - OFF LABEL USE [None]
  - PNEUMONIA [None]
  - PULMONARY CONGESTION [None]
  - WEIGHT FLUCTUATION [None]
